FAERS Safety Report 10951242 (Version 1)
Quarter: 2015Q1

REPORT INFORMATION
  Report Type: Report from Study
  Country: US (occurrence: US)
  Receive Date: 20150324
  Receipt Date: 20150324
  Transmission Date: 20150721
  Serious: Yes (Hospitalization)
  Sender: FDA-Public Use
  Company Number: PHEH2014US021948

PATIENT
  Age: 66 Year
  Sex: Female
  Weight: 60.32 kg

DRUGS (7)
  1. GILENYA [Suspect]
     Active Substance: FINGOLIMOD HYDROCHLORIDE
     Dosage: UNK
     Route: 065
  2. GILENYA [Suspect]
     Active Substance: FINGOLIMOD HYDROCHLORIDE
     Indication: MULTIPLE SCLEROSIS
     Dosage: 0.5 MG, QD
     Route: 048
     Dates: start: 20140915
  3. GILENYA [Suspect]
     Active Substance: FINGOLIMOD HYDROCHLORIDE
     Dosage: UNK
     Route: 065
  4. NAMENDA [Concomitant]
     Active Substance: MEMANTINE HYDROCHLORIDE
     Indication: PRODUCT USED FOR UNKNOWN INDICATION
     Route: 065
  5. GILENYA [Suspect]
     Active Substance: FINGOLIMOD HYDROCHLORIDE
     Dosage: 0.5 MG, QD
     Route: 048
     Dates: end: 20141007
  6. GILENYA [Suspect]
     Active Substance: FINGOLIMOD HYDROCHLORIDE
     Dosage: UNK
     Route: 065
  7. GILENYA [Suspect]
     Active Substance: FINGOLIMOD HYDROCHLORIDE
     Dosage: 0.5 MG, QD
     Route: 048
     Dates: start: 20141024

REACTIONS (24)
  - Lip swelling [Not Recovered/Not Resolved]
  - Tongue discolouration [Unknown]
  - Feeding disorder [Not Recovered/Not Resolved]
  - Anxiety [Recovered/Resolved]
  - Glossodynia [Unknown]
  - Mouth swelling [Not Recovered/Not Resolved]
  - Oral disorder [Not Recovered/Not Resolved]
  - Abnormal behaviour [Recovered/Resolved]
  - Noninfective gingivitis [Not Recovered/Not Resolved]
  - Oral pain [Not Recovered/Not Resolved]
  - Swollen tongue [Not Recovered/Not Resolved]
  - Oral discomfort [Unknown]
  - Tongue disorder [Unknown]
  - Pain [Not Recovered/Not Resolved]
  - Head discomfort [Unknown]
  - Condition aggravated [Recovered/Resolved]
  - Gingival swelling [Not Recovered/Not Resolved]
  - Device related infection [Recovered/Resolved]
  - Amnesia [Unknown]
  - Cardiac disorder [Not Recovered/Not Resolved]
  - Stomatitis [Not Recovered/Not Resolved]
  - Gingival pain [Unknown]
  - Mastication disorder [Unknown]
  - Drug monitoring procedure not performed [Unknown]

NARRATIVE: CASE EVENT DATE: 201409
